FAERS Safety Report 7876020-1 (Version None)
Quarter: 2011Q4

REPORT INFORMATION
  Report Type: 
  Country: None (occurrence: None)
  Receive Date: 20111031
  Receipt Date: 20111024
  Transmission Date: 20120403
  Serious: Yes (Life-Threatening, Hospitalization)
  Sender: FDA-Public Use
  Company Number: US-TRANSKARYOTICTHERAPIESINC-TKT01200600128

PATIENT

DRUGS (2)
  1. SYNERA [Concomitant]
     Indication: LOCAL ANAESTHESIA
     Dosage: UNK UNK, UNKNOWN
     Route: 061
     Dates: start: 20061012, end: 20061012
  2. ELAPRASE [Suspect]
     Indication: MUCOPOLYSACCHARIDOSIS II
     Dosage: 16 MG, 1X/WK
     Route: 041
     Dates: start: 20060901

REACTIONS (12)
  - TONGUE OEDEMA [None]
  - RESPIRATORY DISTRESS [None]
  - TREMOR [None]
  - RETCHING [None]
  - HYPERSENSITIVITY [None]
  - COUGH [None]
  - ANAPHYLACTIC REACTION [None]
  - CHILLS [None]
  - CYANOSIS [None]
  - DYSPNOEA [None]
  - LIP OEDEMA [None]
  - FLUSHING [None]
